FAERS Safety Report 9520182 (Version 1)
Quarter: 2013Q3

REPORT INFORMATION
  Report Type: Spontaneous
  Country: US (occurrence: US)
  Receive Date: 20130912
  Receipt Date: 20130912
  Transmission Date: 20140515
  Serious: No
  Sender: FDA-Public Use
  Company Number: US-MUTUAL PHARMACEUTICAL COMPANY, INC.-BCTM20120051

PATIENT
  Age: 16 Year
  Sex: Male

DRUGS (1)
  1. BACTRIM [Suspect]
     Indication: ACNE
     Route: 065
     Dates: start: 2011, end: 2011

REACTIONS (2)
  - Heart rate increased [Recovered/Resolved]
  - Off label use [None]
